FAERS Safety Report 14364834 (Version 1)
Quarter: 2018Q1

REPORT INFORMATION
  Report Type: Spontaneous
  Country: US (occurrence: US)
  Receive Date: 20180108
  Receipt Date: 20180108
  Transmission Date: 20180509
  Serious: No
  Sender: FDA-Public Use
  Company Number: None

PATIENT

DRUGS (2)
  1. XANAX [Suspect]
     Active Substance: ALPRAZOLAM
     Indication: ANXIETY
     Dates: start: 20120101, end: 20140101
  2. XANAX [Suspect]
     Active Substance: ALPRAZOLAM
     Indication: DEPRESSION
     Dates: start: 20120101, end: 20140101

REACTIONS (2)
  - Therapy change [None]
  - Tremor [None]

NARRATIVE: CASE EVENT DATE: 20140101
